FAERS Safety Report 19189007 (Version 2)
Quarter: 2021Q3

REPORT INFORMATION
  Report Type: Spontaneous
  Country: CA (occurrence: CA)
  Receive Date: 20210428
  Receipt Date: 20210721
  Transmission Date: 20211014
  Serious: Yes (Other)
  Sender: FDA-Public Use
  Company Number: CA-ROCHE-2816645

PATIENT
  Age: 2 Year
  Sex: Female
  Weight: 14 kg

DRUGS (1)
  1. SOMATROPIN. [Suspect]
     Active Substance: SOMATROPIN
     Indication: PRADER-WILLI SYNDROME
     Route: 058

REACTIONS (8)
  - Idiopathic intracranial hypertension [Recovered/Resolved]
  - Mood altered [Recovered/Resolved]
  - Pain in extremity [Recovered/Resolved]
  - Headache [Recovered/Resolved]
  - Irritability [Recovered/Resolved]
  - Injection site bruising [Recovered/Resolved]
  - Wrong technique in device usage process [Unknown]
  - Injection site pain [Recovered/Resolved]
